FAERS Safety Report 25097291 (Version 2)
Quarter: 2025Q2

REPORT INFORMATION
  Report Type: Report from Study
  Country: US (occurrence: US)
  Receive Date: 20250320
  Receipt Date: 20250414
  Transmission Date: 20250717
  Serious: Yes (Hospitalization, Other)
  Sender: ABBVIE
  Company Number: US-ABBVIE-6177496

PATIENT
  Age: 63 Year
  Sex: Male
  Weight: 90.3 kg

DRUGS (5)
  1. HUMIRA [Suspect]
     Active Substance: ADALIMUMAB
     Indication: Ocular sarcoidosis
     Dosage: FORM STRENGTH- 40 MILLIGRAM
     Route: 058
     Dates: start: 2021, end: 20250203
  2. HUMIRA [Suspect]
     Active Substance: ADALIMUMAB
     Indication: Uveitis
     Dosage: FORM STRENGTH- 40 MILLIGRAM
     Route: 058
     Dates: start: 20250310
  3. LISINOPRIL [Concomitant]
     Active Substance: LISINOPRIL
     Indication: Hypertension
     Dates: end: 202502
  4. PROPRANOLOL [Concomitant]
     Active Substance: PROPRANOLOL HYDROCHLORIDE
     Indication: Hypertension
     Dates: end: 202502
  5. NOVOLIN 70/30 [Concomitant]
     Active Substance: INSULIN HUMAN
     Indication: Diabetes mellitus

REACTIONS (30)
  - Coronary artery disease [Recovered/Resolved]
  - Coronary artery occlusion [Recovered/Resolved]
  - Gastric ulcer [Recovered/Resolved]
  - Anaesthetic complication [Recovering/Resolving]
  - Gastric haemorrhage [Recovered/Resolved]
  - Feeding disorder [Unknown]
  - Scar [Recovering/Resolving]
  - Meibomian gland dysfunction [Not Recovered/Not Resolved]
  - Dizziness [Recovered/Resolved]
  - Blindness unilateral [Not Recovered/Not Resolved]
  - Procedural complication [Unknown]
  - Weight decreased [Recovered/Resolved]
  - Conjunctival haemorrhage [Recovered/Resolved]
  - Chest pain [Recovered/Resolved]
  - Atrial fibrillation [Recovered/Resolved]
  - Dry eye [Not Recovered/Not Resolved]
  - Tachycardia [Recovered/Resolved]
  - Decreased appetite [Recovered/Resolved]
  - Haemoglobin decreased [Recovering/Resolving]
  - Fatigue [Recovered/Resolved]
  - Ileus [Recovered/Resolved]
  - Lacrimal disorder [Not Recovered/Not Resolved]
  - Faecal vomiting [Recovered/Resolved]
  - Anaemia [Recovered/Resolved]
  - Sternotomy [Recovered/Resolved]
  - Eye injury [Recovered/Resolved]
  - Visual impairment [Not Recovered/Not Resolved]
  - Post procedural complication [Recovered/Resolved]
  - Cardiac operation [Recovered/Resolved]
  - Arterial occlusive disease [Unknown]

NARRATIVE: CASE EVENT DATE: 20241001
